FAERS Safety Report 14705739 (Version 1)
Quarter: 2018Q2

REPORT INFORMATION
  Report Type: Spontaneous
  Country: US (occurrence: US)
  Receive Date: 20180402
  Receipt Date: 20180402
  Transmission Date: 20180711
  Serious: Yes (Other)
  Sender: FDA-Public Use
  Company Number: US-ROCHE-2098016

PATIENT
  Age: 65 Year
  Sex: Female
  Weight: 61.29 kg

DRUGS (11)
  1. VALIUM [Suspect]
     Active Substance: DIAZEPAM
     Indication: SCIATICA
  2. VALIUM [Suspect]
     Active Substance: DIAZEPAM
     Indication: BACK DISORDER
  3. DIAZEPAM. [Suspect]
     Active Substance: DIAZEPAM
     Indication: INTERVERTEBRAL DISC DEGENERATION
     Dosage: AS NEEDED EVERY 6-8 HRS BUT NOT ALWAYS EVERY DAY
     Route: 048
  4. DIAZEPAM. [Suspect]
     Active Substance: DIAZEPAM
     Indication: SCIATICA
  5. VALIUM [Suspect]
     Active Substance: DIAZEPAM
     Indication: INTERVERTEBRAL DISC DEGENERATION
     Dosage: ONGOING- UNKNOWN, HALF TAB AS NEEDED EVERY 6 OR 8?STOPPED PROBABLY LATE 2016, ALTHOUGH IT COULD HAVE
     Route: 048
  6. VALIUM [Suspect]
     Active Substance: DIAZEPAM
     Indication: MYOSITIS
  7. DIAZEPAM. [Suspect]
     Active Substance: DIAZEPAM
     Indication: BACK DISORDER
  8. DIAZEPAM. [Suspect]
     Active Substance: DIAZEPAM
     Indication: SPINAL DISORDER
  9. VALIUM [Suspect]
     Active Substance: DIAZEPAM
     Indication: SPINAL DISORDER
  10. DIAZEPAM. [Suspect]
     Active Substance: DIAZEPAM
     Indication: MYOSITIS
  11. PERCOCET [Concomitant]
     Active Substance: ACETAMINOPHEN\OXYCODONE HYDROCHLORIDE
     Dosage: ONGOING- UNKNOWN 5/325 MG TABLETS, 1 QUARTER TABLE
     Route: 048

REACTIONS (8)
  - Pneumonia [Recovered/Resolved]
  - Fall [Unknown]
  - Rib fracture [Unknown]
  - Drug effect decreased [Unknown]
  - Dehydration [Recovered/Resolved]
  - Malnutrition [Recovered/Resolved]
  - Off label use [Unknown]
  - Intentional product use issue [Unknown]

NARRATIVE: CASE EVENT DATE: 20170304
